FAERS Safety Report 4778423-0 (Version None)
Quarter: 2005Q3

REPORT INFORMATION
  Report Type: 
  Country: None (occurrence: None)
  Receive Date: 20050926
  Receipt Date: 20050912
  Transmission Date: 20060218
  Serious: Yes (Life-Threatening, Other)
  Sender: FDA-Public Use
  Company Number: CA-JNJFOC-20050704595

PATIENT
  Sex: Female

DRUGS (7)
  1. TOPAMAX [Suspect]
  2. TOPAMAX [Suspect]
     Indication: NEUROPATHIC PAIN
  3. EFFEXOR [Concomitant]
  4. SYNTHROID [Concomitant]
  5. ZOCOR [Concomitant]
  6. CLONAZEPAM [Concomitant]
  7. PARIET [Concomitant]

REACTIONS (9)
  - DEPRESSION [None]
  - HAEMATURIA [None]
  - LOSS OF CONSCIOUSNESS [None]
  - MUSCULOSKELETAL DISORDER [None]
  - NERVOUSNESS [None]
  - PAIN [None]
  - PARAESTHESIA [None]
  - ROAD TRAFFIC ACCIDENT [None]
  - URINARY TRACT INFECTION [None]
